FAERS Safety Report 9117989 (Version 2)
Quarter: 2013Q1

REPORT INFORMATION
  Report Type: Spontaneous
  Country: DE (occurrence: DE)
  Receive Date: 20130226
  Receipt Date: 20130308
  Transmission Date: 20140127
  Serious: Yes (Other)
  Sender: FDA-Public Use
  Company Number: PHHY2013DE016010

PATIENT
  Age: 72 Year
  Sex: Female

DRUGS (4)
  1. AFINITOR [Suspect]
     Indication: BREAST CANCER METASTATIC
     Dosage: 10 MG, DAILY
     Route: 048
     Dates: start: 20121111, end: 20130121
  2. EXEMESTAN [Concomitant]
     Indication: BREAST CANCER METASTATIC
     Dosage: 2.5 MG, UNK
     Route: 048
     Dates: start: 20121111
  3. IBUPROFEN [Concomitant]
     Indication: METASTASES TO BONE
     Dosage: 1200 MG, UNK
     Route: 048
     Dates: start: 20130220
  4. IBANDRONATE [Concomitant]
     Indication: METASTASES TO BONE
     Dosage: 6 MG, UNK
     Route: 042
     Dates: start: 20130220

REACTIONS (2)
  - Salivary gland calculus [Recovering/Resolving]
  - Stomatitis haemorrhagic [Recovering/Resolving]
